FAERS Safety Report 4498355-5 (Version None)
Quarter: 2004Q4

REPORT INFORMATION
  Report Type: 
  Country: None (occurrence: None)
  Receive Date: 20041105
  Receipt Date: 20041025
  Transmission Date: 20050328
  Serious: Yes (Hospitalization)
  Sender: FDA-Public Use
  Company Number: BRO-007855

PATIENT
  Age: 66 Year
  Sex: Female

DRUGS (2)
  1. IOPAMIDOL / IOPAMIRON 300  (BATCH # (S): 42266) [Suspect]
     Indication: COMPUTERISED TOMOGRAM
     Dosage: IV
     Route: 042
     Dates: start: 20041008, end: 20041008
  2. IV SOLUTION [Concomitant]

REACTIONS (7)
  - CALCULUS URETERIC [None]
  - CARDIAC DISORDER [None]
  - CEREBRAL ARTERY EMBOLISM [None]
  - CEREBRAL INFARCTION [None]
  - DEPRESSED LEVEL OF CONSCIOUSNESS [None]
  - HEMIPLEGIA [None]
  - SPEECH DISORDER [None]
